FAERS Safety Report 10054916 (Version 2)
Quarter: 2014Q2

REPORT INFORMATION
  Report Type: Spontaneous
  Country: US (occurrence: US)
  Receive Date: 20140402
  Receipt Date: 20140626
  Transmission Date: 20141212
  Serious: Yes (Hospitalization, Other)
  Sender: FDA-Public Use
  Company Number: US-GILEAD-2014-0098550

PATIENT
  Sex: Female

DRUGS (4)
  1. LETAIRIS [Suspect]
     Indication: PULMONARY HYPERTENSION
     Dosage: 5 MG, QD
     Route: 048
     Dates: start: 20131004
  2. LETAIRIS [Suspect]
     Indication: SICKLE CELL ANAEMIA
  3. FLOLAN [Concomitant]
  4. REVATIO [Concomitant]

REACTIONS (1)
  - Sickle cell anaemia [Unknown]
